FAERS Safety Report 6599661-0 (Version None)
Quarter: 2010Q1

REPORT INFORMATION
  Report Type: 
  Country: None (occurrence: None)
  Receive Date: 20100224
  Receipt Date: 20100218
  Transmission Date: 20100710
  Serious: Yes (Other)
  Sender: FDA-Public Use
  Company Number: DE-ROCHE-686734

PATIENT
  Age: 53 Year
  Sex: Female

DRUGS (2)
  1. AVASTIN [Suspect]
     Indication: BRONCHIAL CARCINOMA
     Route: 065
     Dates: start: 20090801
  2. ALIMTA [Concomitant]
     Indication: BRONCHIAL CARCINOMA
     Dosage: IN COMBINATION WITH BEVACIZUMAB.
     Dates: start: 20091001

REACTIONS (3)
  - ALANINE AMINOTRANSFERASE INCREASED [None]
  - ASPARTATE AMINOTRANSFERASE INCREASED [None]
  - GAMMA-GLUTAMYLTRANSFERASE INCREASED [None]
